FAERS Safety Report 15340269 (Version 2)
Quarter: 2018Q3

REPORT INFORMATION
  Report Type: Spontaneous
  Country: RU (occurrence: RU)
  Receive Date: 20180831
  Receipt Date: 20180911
  Transmission Date: 20181010
  Serious: Yes (Other)
  Sender: FDA-Public Use
  Company Number: RU-ASTRAZENECA-2017SF25382

PATIENT
  Age: 53 Year
  Sex: Female
  Weight: 86 kg

DRUGS (8)
  1. ROSUVASTATIN. [Concomitant]
     Active Substance: ROSUVASTATIN
  2. URSOSAN [Concomitant]
     Active Substance: URSODIOL
  3. PERINDOPRIL [Concomitant]
     Active Substance: PERINDOPRIL
  4. OMEZ [Concomitant]
     Active Substance: OMEPRAZOLE
  5. BRILINTA [Suspect]
     Active Substance: TICAGRELOR
     Indication: MYOCARDIAL INFARCTION
     Route: 048
     Dates: start: 201706
  6. BISOPROLOL [Concomitant]
     Active Substance: BISOPROLOL
  7. ACECARDOL [Concomitant]
     Active Substance: ASPIRIN
  8. ATORVASTATIN [Concomitant]
     Active Substance: ATORVASTATIN

REACTIONS (11)
  - Memory impairment [Recovering/Resolving]
  - Arthritis [Not Recovered/Not Resolved]
  - Blood pressure increased [Not Recovered/Not Resolved]
  - Product use issue [Unknown]
  - Dyspnoea [Not Recovered/Not Resolved]
  - Dyspepsia [Not Recovered/Not Resolved]
  - Hyperchlorhydria [Not Recovered/Not Resolved]
  - Asthenia [Not Recovered/Not Resolved]
  - Off label use [Unknown]
  - Foot fracture [Unknown]
  - Syncope [Unknown]

NARRATIVE: CASE EVENT DATE: 2018
